FAERS Safety Report 9749951 (Version 2)
Quarter: 2013Q4

REPORT INFORMATION
  Report Type: Spontaneous
  Country: US (occurrence: US)
  Receive Date: 20131212
  Receipt Date: 20131216
  Transmission Date: 20140711
  Serious: No
  Sender: FDA-Public Use
  Company Number: US-TEVA-448956USA

PATIENT
  Sex: Male

DRUGS (1)
  1. QNASL [Suspect]

REACTIONS (3)
  - Product odour abnormal [Unknown]
  - Device malfunction [Unknown]
  - Visual impairment [Unknown]
